FAERS Safety Report 8791576 (Version 1)
Quarter: 2012Q4

REPORT INFORMATION
  Report Type: Spontaneous
  Country: CU (occurrence: None)
  Receive Date: 20120913
  Receipt Date: 20120913
  Transmission Date: 20130627
  Serious: Yes (Hospitalization, Other)
  Sender: FDA-Public Use
  Company Number: DKLU1084476

PATIENT
  Age: 20 Year
  Sex: Male

DRUGS (15)
  1. ONFI [Suspect]
     Indication: LENNOX--GASTAUT SYNDROME
  2. SABRIL [Suspect]
     Indication: LENNOX--GASTAUT SYNDROME
  3. SABRIL [Suspect]
     Indication: LENNOX--GASTAUT SYNDROME
  4. VALPROIC ACID [Suspect]
     Indication: LENNOX--GASTAUT SYNDROME
  5. VALPROIC ACID [Suspect]
     Indication: LENNOX--GASTAUT SYNDROME
  6. TOPIRAMATE [Suspect]
     Indication: LENNOX--GASTAUT SYNDROME
  7. CLONAZEPAM [Suspect]
     Indication: LENNOX--GASTAUT SYNDROME
  8. CARBAMAZEPINE [Suspect]
     Indication: LENNOX--GASTAUT SYNDROME
  9. CARBAMAZEPINE [Suspect]
     Indication: LENNOX--GASTAUT SYNDROME
  10. RISPERIDONE [Suspect]
     Indication: LENNOX--GASTAUT SYNDROME
  11. LEVETIRACETAM [Suspect]
     Indication: LENNOX--GASTAUT SYNDROME
  12. PHENOBARBITAL [Suspect]
     Indication: LENNOX--GASTAUT SYNDROME
  13. PHENYTOIN [Suspect]
     Indication: LENNOX--GASTAUT SYNDROME
  14. PHENYTOIN [Suspect]
     Indication: LENNOX--GASTAUT SYNDROME
  15. ANTIEPILEPTICS [Suspect]
     Indication: LENNOX--GASTAUT SYNDROME

REACTIONS (6)
  - Toxicity to various agents [None]
  - Epilepsy [None]
  - Drug ineffective [None]
  - Anticonvulsant drug level increased [None]
  - Liver function test abnormal [None]
  - Tonic convulsion [None]
